FAERS Safety Report 23694437 (Version 2)
Quarter: 2024Q2

REPORT INFORMATION
  Report Type: Spontaneous
  Country: NL (occurrence: NL)
  Receive Date: 20240401
  Receipt Date: 20240403
  Transmission Date: 20240716
  Serious: Yes (Hospitalization, Other)
  Sender: FDA-Public Use
  Company Number: NL-SA-2024SA081000

PATIENT
  Age: 66 Year
  Sex: Female

DRUGS (12)
  1. CYCLOPHOSPHAMIDE [Suspect]
     Active Substance: CYCLOPHOSPHAMIDE
     Indication: Metastases to skin
     Dosage: 60 MG/KG
     Route: 065
  2. CYCLOPHOSPHAMIDE [Suspect]
     Active Substance: CYCLOPHOSPHAMIDE
     Indication: Metastases to lymph nodes
  3. CYCLOPHOSPHAMIDE [Suspect]
     Active Substance: CYCLOPHOSPHAMIDE
     Indication: Metastatic malignant melanoma
  4. FLUDARABINE PHOSPHATE [Suspect]
     Active Substance: FLUDARABINE PHOSPHATE
     Indication: Metastases to lymph nodes
     Dosage: 25 MG/M2
     Route: 065
  5. FLUDARABINE PHOSPHATE [Suspect]
     Active Substance: FLUDARABINE PHOSPHATE
     Indication: Metastases to skin
  6. FLUDARABINE PHOSPHATE [Suspect]
     Active Substance: FLUDARABINE PHOSPHATE
     Indication: Metastatic malignant melanoma
  7. ALDESLEUKIN [Suspect]
     Active Substance: ALDESLEUKIN
     Indication: Metastases to lymph nodes
     Dosage: (600 000 IU/ KG/DOSE) , EVERY 8 HOUR
     Route: 042
  8. ALDESLEUKIN [Suspect]
     Active Substance: ALDESLEUKIN
     Indication: Metastases to skin
  9. LYMPHOCYTES [Suspect]
     Active Substance: LYMPHOCYTES
     Indication: Metastatic malignant melanoma
     Dosage: UNK
     Route: 042
  10. LYMPHOCYTES [Suspect]
     Active Substance: LYMPHOCYTES
     Indication: Metastases to lymph nodes
  11. LYMPHOCYTES [Suspect]
     Active Substance: LYMPHOCYTES
     Indication: Metastases to skin
  12. NIVOLUMAB [Concomitant]
     Active Substance: NIVOLUMAB
     Indication: Metastatic malignant melanoma
     Dosage: UNK
     Route: 065

REACTIONS (13)
  - Cardiac failure [Recovered/Resolved]
  - Fluid retention [Recovered/Resolved]
  - Tachycardia [Recovered/Resolved]
  - Hypoxia [Recovered/Resolved]
  - Tachypnoea [Recovered/Resolved]
  - Oedema [Recovered/Resolved]
  - Pulmonary congestion [Recovered/Resolved]
  - Off label use [Recovered/Resolved]
  - Pericardial effusion [Recovered/Resolved]
  - Respiratory failure [Unknown]
  - Glomerulonephritis rapidly progressive [Unknown]
  - Nephrotic syndrome [Unknown]
  - Renal failure [Unknown]
